FAERS Safety Report 9520464 (Version 4)
Quarter: 2014Q2

REPORT INFORMATION
  Report Type: Spontaneous
  Country: US (occurrence: US)
  Receive Date: 20130912
  Receipt Date: 20140510
  Transmission Date: 20141212
  Serious: Yes (Death, Hospitalization, Other)
  Sender: FDA-Public Use
  Company Number: US201201006627

PATIENT
  Age: 57 Year
  Sex: Female
  Weight: 59.9 kg

DRUGS (23)
  1. BYETTA [Suspect]
     Indication: TYPE 2 DIABETES MELLITUS
     Route: 058
     Dates: start: 201001, end: 20110920
  2. BYDUREON 2MG VIAL + SYRINGE [Suspect]
     Route: 058
     Dates: start: 201007, end: 20101217
  3. ACTOS [Concomitant]
     Dosage: TAB
     Route: 048
  4. METFORMIN HCL TABS [Concomitant]
  5. GLIMEPIRIDE [Concomitant]
     Dosage: 2MG TAB AT BED TIME
     Route: 048
  6. BENICAR [Concomitant]
     Dosage: TAB
     Route: 048
  7. VITAMIN B COMPLEX [Concomitant]
     Dosage: CAP
  8. RETIN-A [Concomitant]
     Dosage: GEL
  9. VANIQA CREAM [Concomitant]
  10. ESTRACE CREAM [Concomitant]
  11. MALARONE [Concomitant]
     Dosage: 1DF:250-100 MG TABS 1 TABLET
     Route: 048
  12. LIPITOR [Concomitant]
     Dosage: TAB
     Route: 048
  13. ACTOS [Concomitant]
     Dosage: TABS
     Route: 048
  14. PROCHLORPERAZINE MALEATE [Concomitant]
     Dosage: TAB
     Route: 048
  15. ZOFRAN [Concomitant]
     Dosage: TAB
  16. ATIVAN [Concomitant]
     Indication: ANXIETY
  17. LASIX [Concomitant]
     Indication: LOCAL SWELLING
     Dosage: TAB
     Route: 048
  18. EMLA [Concomitant]
     Dosage: CREAM
  19. KLOR-CON [Concomitant]
     Dosage: TAB
     Route: 048
  20. MAGIC MOUTHWASH [Concomitant]
     Indication: MOUTH ULCERATION
  21. MAGNESIUM OXIDE [Concomitant]
     Dosage: TAB
  22. LOVENOX [Concomitant]
     Dosage: 1DF:80 MG/0.SML
     Route: 058
  23. ZEGERID [Concomitant]

REACTIONS (3)
  - Pancreatic carcinoma metastatic [Fatal]
  - Septic shock [Unknown]
  - Renal failure [Unknown]
